FAERS Safety Report 4627107-8 (Version None)
Quarter: 2005Q1

REPORT INFORMATION
  Report Type: 
  Country: None (occurrence: None)
  Receive Date: 20050331
  Receipt Date: 20050318
  Transmission Date: 20050727
  Serious: Yes (Other)
  Sender: FDA-Public Use
  Company Number: 2005047432

PATIENT
  Age: 61 Year
  Sex: Female
  Weight: 104.3273 kg

DRUGS (7)
  1. CELEBREX [Suspect]
     Indication: OSTEOARTHRITIS
     Dosage: 200 MG (200 MG, 1 IN 1 D), ORAL
     Route: 048
  2. METFORMIN HCL [Concomitant]
  3. LISINOPRIL [Concomitant]
  4. VERAPAMIL [Concomitant]
  5. ALLOPURINOL [Concomitant]
  6. POTASSIUM ACETATE [Concomitant]
  7. HYDROCODONE BITARTRATE [Concomitant]

REACTIONS (4)
  - DRUG INEFFECTIVE [None]
  - PAIN [None]
  - POST PROCEDURAL PAIN [None]
  - TREATMENT NONCOMPLIANCE [None]
